FAERS Safety Report 6110301-7 (Version None)
Quarter: 2009Q1

REPORT INFORMATION
  Report Type: 
  Country: None (occurrence: None)
  Receive Date: 20090310
  Receipt Date: 20090226
  Transmission Date: 20090719
  Serious: Yes (Hospitalization, Other)
  Sender: FDA-Public Use
  Company Number: BR-PFIZER INC-2009163546

PATIENT

DRUGS (4)
  1. DALACIN [Suspect]
     Indication: ERYSIPELAS
     Dates: start: 20090111
  2. METFORMIN HYDROCHLORIDE [Concomitant]
     Dosage: 850 MG, UNK
     Route: 065
     Dates: start: 20040101
  3. GLUCOBAY [Concomitant]
     Dosage: UNK
     Route: 065
     Dates: start: 20040101
  4. LOSARTAN POTASSIUM [Concomitant]
     Dosage: UNK
     Route: 065
     Dates: start: 20040101

REACTIONS (2)
  - GENERALISED ERYTHEMA [None]
  - NEOPLASM [None]
